FAERS Safety Report 7524496-1 (Version None)
Quarter: 2011Q2

REPORT INFORMATION
  Report Type: 
  Country: None (occurrence: None)
  Receive Date: 20110606
  Receipt Date: 20110524
  Transmission Date: 20111010
  Serious: Yes (Hospitalization)
  Sender: FDA-Public Use
  Company Number: US-BAYER-2011-017829

PATIENT
  Age: 38 Year
  Sex: Female
  Weight: 81.633 kg

DRUGS (4)
  1. EXCEDRIN [ACETYLSALICYLIC ACID,CAFFEINE,PARACETAMOL,SALICYLAMIDE] [Concomitant]
  2. YAZ [Suspect]
     Indication: CONTRACEPTION
     Dosage: UNK
     Route: 048
     Dates: start: 20080101
  3. YAZ [Suspect]
     Indication: MENSTRUATION IRREGULAR
  4. DILAUDID [Concomitant]
     Indication: PAIN
     Dosage: UNK
     Dates: start: 20080201

REACTIONS (5)
  - PULMONARY EMBOLISM [None]
  - DEEP VEIN THROMBOSIS [None]
  - INJURY [None]
  - PAIN [None]
  - LUNG DISORDER [None]
